FAERS Safety Report 7664831 (Version 6)
Quarter: 2014Q1

REPORT INFORMATION
  Report Type: Spontaneous
  Country: US (occurrence: US)
  Receive Date: 20101111
  Receipt Date: 20140107
  Transmission Date: 20141002
  Serious: Yes (Other)
  Sender: FDA-Public Use
  Company Number: US-ROCHE-718621

PATIENT
  Age: 16 Year
  Sex: Female
  Weight: 52.2 kg

DRUGS (2)
  1. ACCUTANE [Suspect]
     Indication: ACNE
     Route: 065
     Dates: start: 199402, end: 199407
  2. ACCUTANE [Suspect]
     Route: 065
     Dates: start: 199909, end: 200002

REACTIONS (8)
  - Inflammatory bowel disease [Unknown]
  - Gastrointestinal injury [Unknown]
  - Gastritis [Unknown]
  - Gastrooesophageal reflux disease [Unknown]
  - Crohn^s disease [Unknown]
  - Colitis ulcerative [Unknown]
  - Depression [Unknown]
  - Irritable bowel syndrome [Unknown]
